FAERS Safety Report 4409386-5 (Version None)
Quarter: 2004Q3

REPORT INFORMATION
  Report Type: 
  Country: None (occurrence: None)
  Receive Date: 20040727
  Receipt Date: 20040727
  Transmission Date: 20050211
  Serious: Yes (Hospitalization)
  Sender: FDA-Public Use
  Company Number: None

PATIENT
  Age: 80 Year
  Sex: Male
  Weight: 93.5 kg

DRUGS (10)
  1. ACYCLOVIR [Suspect]
     Indication: ENCEPHALITIS HERPES
     Dosage: 750 MG IV Q 8 H
     Route: 042
     Dates: start: 20040203, end: 20040204
  2. COUMADIN [Concomitant]
  3. DILANTIN [Concomitant]
  4. CALAN [Concomitant]
  5. DIOVAN [Concomitant]
  6. DYAZIDE 37.5/25MG [Concomitant]
  7. VIOXX [Concomitant]
  8. ATIVAN [Concomitant]
  9. ASPIRIN [Concomitant]
  10. ACYCLOVIR [Suspect]
     Dosage: 930 MG IV Q8H
     Route: 042
     Dates: start: 20040201

REACTIONS (3)
  - NEPHROPATHY [None]
  - RENAL FAILURE ACUTE [None]
  - RENAL TUBULAR NECROSIS [None]
